FAERS Safety Report 5778637-7 (Version None)
Quarter: 2008Q2

REPORT INFORMATION
  Report Type: 
  Country: None (occurrence: None)
  Receive Date: 20080619
  Receipt Date: 20080616
  Transmission Date: 20081010
  Serious: Yes (Hospitalization, Other)
  Sender: FDA-Public Use
  Company Number: A0733136A

PATIENT
  Sex: Female

DRUGS (10)
  1. LAMICTAL [Suspect]
     Indication: BIPOLAR DISORDER
     Dosage: 100MG TWICE PER DAY
     Route: 048
  2. LOVAZA [Concomitant]
  3. RANEXA [Concomitant]
  4. CHOLESTYRAMINE [Concomitant]
  5. NITROGLYCERIN [Concomitant]
  6. ZETIA [Concomitant]
  7. PLAVIX [Concomitant]
  8. NEURONTIN [Concomitant]
  9. CODEINE [Concomitant]
  10. KLONOPIN [Concomitant]

REACTIONS (7)
  - ADVERSE EVENT [None]
  - AURA [None]
  - CLUMSINESS [None]
  - CONFUSIONAL STATE [None]
  - GAIT DISTURBANCE [None]
  - HEMIPARESIS [None]
  - ILL-DEFINED DISORDER [None]
